FAERS Safety Report 7020207-7 (Version None)
Quarter: 2010Q3

REPORT INFORMATION
  Report Type: 
  Country: None (occurrence: None)
  Receive Date: 20100929
  Receipt Date: 20100917
  Transmission Date: 20110219
  Serious: Yes (Other)
  Sender: FDA-Public Use
  Company Number: PHHY2010FR62217

PATIENT
  Age: 70 Year
  Sex: Male

DRUGS (2)
  1. RASILEZ [Suspect]
     Dosage: UNK
     Route: 048
  2. ANTIHYPERTENSIVE DRUGS [Concomitant]

REACTIONS (2)
  - CREATININE RENAL CLEARANCE DECREASED [None]
  - RENAL FAILURE [None]
